FAERS Safety Report 6157666-8 (Version None)
Quarter: 2009Q2

REPORT INFORMATION
  Report Type: 
  Country: None (occurrence: None)
  Receive Date: 20090414
  Receipt Date: 20090414
  Transmission Date: 20091009
  Serious: Yes (Life-Threatening)
  Sender: FDA-Public Use
  Company Number: None

PATIENT
  Age: 62 Year
  Sex: Female
  Weight: 67.2 kg

DRUGS (10)
  1. TETRAVISC 0.5% ALTAIRE PHARMACEUTICALS, [Suspect]
     Indication: BLEPHAROPLASTY
     Dosage: ONE DROP TIMES ONE OPHTHALMIC
     Route: 047
     Dates: start: 20090407, end: 20090407
  2. FAMOTIDINE [Concomitant]
  3. MIDAZOLAM HCL [Concomitant]
  4. PROPOFOL [Concomitant]
  5. KETAMINE HCL [Concomitant]
  6. POVIDONE IODINE [Concomitant]
  7. CLONIDINE [Concomitant]
  8. ALPRAZOLAM [Concomitant]
  9. CLINDAMYCIN HCL [Concomitant]
  10. . [Concomitant]

REACTIONS (4)
  - ABDOMINAL DISTENSION [None]
  - FACE OEDEMA [None]
  - OXYGEN SATURATION DECREASED [None]
  - RASH [None]
